FAERS Safety Report 15049583 (Version 2)
Quarter: 2019Q4

REPORT INFORMATION
  Report Type: Spontaneous
  Country: CA (occurrence: CA)
  Receive Date: 20180622
  Receipt Date: 20191025
  Transmission Date: 20200122
  Serious: Yes (Life-Threatening, Hospitalization)
  Sender: FDA-Public Use
  Company Number: CA-TEVA-2018-CA-909770

PATIENT
  Age: 70 Year
  Sex: Female
  Weight: 58 kg

DRUGS (4)
  1. GEMCITABINE INJECTION 200 MG/5.26 ML, 1 G/26.3ML, + 2 G /52.6 ML SINGL [Suspect]
     Active Substance: GEMCITABINE\GEMCITABINE HYDROCHLORIDE
     Indication: SQUAMOUS CELL CARCINOMA OF LUNG
     Route: 042
  2. VITAMIN D /00107901/ [Concomitant]
     Active Substance: ERGOCALCIFEROL
     Indication: PRODUCT USED FOR UNKNOWN INDICATION
     Route: 065
  3. ZOCOR [Concomitant]
     Active Substance: SIMVASTATIN
     Indication: PRODUCT USED FOR UNKNOWN INDICATION
     Route: 065
  4. LYRICA [Concomitant]
     Active Substance: PREGABALIN
     Indication: PRODUCT USED FOR UNKNOWN INDICATION
     Route: 065

REACTIONS (7)
  - Acute myocardial infarction [Recovering/Resolving]
  - Antiphospholipid syndrome [Recovering/Resolving]
  - Plasmapheresis [Recovering/Resolving]
  - Platelet transfusion [Recovering/Resolving]
  - Transfusion [Recovering/Resolving]
  - Thrombotic microangiopathy [Recovering/Resolving]
  - Blood creatinine increased [Recovering/Resolving]
